FAERS Safety Report 24618646 (Version 2)
Quarter: 2025Q3

REPORT INFORMATION
  Report Type: Spontaneous
  Country: CA (occurrence: CA)
  Receive Date: 20241114
  Receipt Date: 20250814
  Transmission Date: 20251021
  Serious: Yes (Hospitalization, Other)
  Sender: HIKMA
  Company Number: CA-HIKMA PHARMACEUTICALS-CA-H14001-24-07417

PATIENT
  Age: 75 Year
  Sex: Male

DRUGS (15)
  1. AZACITIDINE [Suspect]
     Active Substance: AZACITIDINE
     Indication: Acute myeloid leukaemia
     Dosage: 75 MILLIGRAM/SQ. METER, QD
     Route: 065
  2. AZACITIDINE [Suspect]
     Active Substance: AZACITIDINE
     Dosage: 75 MILLIGRAM/SQ. METER, QD
     Route: 065
  3. AZACITIDINE [Suspect]
     Active Substance: AZACITIDINE
     Dosage: 75 MILLIGRAM/SQ. METER, QD
     Route: 065
  4. AZACITIDINE [Suspect]
     Active Substance: AZACITIDINE
     Dosage: 75 MILLIGRAM/SQ. METER, QD
     Route: 065
  5. AZACITIDINE [Suspect]
     Active Substance: AZACITIDINE
     Dosage: 75 MILLIGRAM/SQ. METER, QD
     Route: 065
  6. AZACITIDINE [Suspect]
     Active Substance: AZACITIDINE
     Dosage: 75 MILLIGRAM/SQ. METER, QD
     Route: 065
  7. AZACITIDINE [Suspect]
     Active Substance: AZACITIDINE
     Dosage: 70 MILLIGRAM PER CUBIC METRE, QD
     Route: 065
  8. AZACITIDINE [Suspect]
     Active Substance: AZACITIDINE
     Dosage: 70 MILLIGRAM PER CUBIC METRE, QD
     Route: 065
  9. VENETOCLAX [Suspect]
     Active Substance: VENETOCLAX
     Dosage: 200 MILLIGRAM, QD
     Route: 048
  10. VENETOCLAX [Suspect]
     Active Substance: VENETOCLAX
     Indication: Acute myeloid leukaemia
     Dosage: 400 MILLIGRAM, QD
     Route: 048
  11. VENETOCLAX [Suspect]
     Active Substance: VENETOCLAX
     Dosage: 400 MILLIGRAM, QD
     Route: 048
  12. VENETOCLAX [Suspect]
     Active Substance: VENETOCLAX
     Dosage: 400 MILLIGRAM, QD
     Route: 048
  13. VENETOCLAX [Suspect]
     Active Substance: VENETOCLAX
     Dosage: 400 MILLIGRAM, QD
     Route: 048
  14. VENETOCLAX [Suspect]
     Active Substance: VENETOCLAX
     Dosage: 400 MILLIGRAM, QD
     Route: 048
  15. VENETOCLAX [Suspect]
     Active Substance: VENETOCLAX
     Dosage: 400 MILLIGRAM, QD
     Route: 048

REACTIONS (12)
  - Atelectasis [Recovered/Resolved]
  - Gas gangrene [Recovered/Resolved]
  - Gastrointestinal disorder [Recovered/Resolved]
  - Incarcerated inguinal hernia [Recovered/Resolved]
  - Inguinal hernia [Recovered/Resolved]
  - Intestinal adenocarcinoma [Recovered/Resolved]
  - Localised oedema [Recovered/Resolved]
  - Lung consolidation [Recovered/Resolved]
  - Necrotising fasciitis [Recovered/Resolved]
  - Oedema peripheral [Recovered/Resolved]
  - Superinfection [Recovered/Resolved]
  - Medical device implantation [Recovered/Resolved]
